FAERS Safety Report 6575638-6 (Version None)
Quarter: 2010Q1

REPORT INFORMATION
  Report Type: 
  Country: None (occurrence: None)
  Receive Date: 20100208
  Receipt Date: 20100208
  Transmission Date: 20100710
  Serious: Yes (Life-Threatening)
  Sender: FDA-Public Use
  Company Number: None

PATIENT
  Age: 59 Year
  Sex: Female
  Weight: 72.5755 kg

DRUGS (1)
  1. CLONIDINE [Suspect]
     Indication: HYPERTENSION
     Dosage: 1 TAB TID PO
     Route: 048
     Dates: start: 20100115, end: 20100204

REACTIONS (2)
  - BLOOD PRESSURE INCREASED [None]
  - PRODUCT SUBSTITUTION ISSUE [None]
